FAERS Safety Report 6999507-2 (Version None)
Quarter: 2010Q3

REPORT INFORMATION
  Report Type: 
  Country: None (occurrence: None)
  Receive Date: 20100920
  Receipt Date: 20100721
  Transmission Date: 20110219
  Serious: No
  Sender: FDA-Public Use
  Company Number: US-ASTRAZENECA-2010SE34089

PATIENT
  Age: 658 Month
  Sex: Female
  Weight: 92.5 kg

DRUGS (6)
  1. SEROQUEL [Suspect]
     Indication: DEPRESSION
     Route: 048
     Dates: start: 20070101, end: 20100701
  2. SEROQUEL [Suspect]
     Route: 048
     Dates: start: 20100701, end: 20100719
  3. SEROQUEL [Suspect]
     Dosage: 300MG TABLET IN HALF
     Route: 048
  4. PRILOSEC [Concomitant]
     Indication: GASTROOESOPHAGEAL REFLUX DISEASE
     Route: 048
  5. OXYBUTYNIN [Concomitant]
     Indication: HYPERTONIC BLADDER
     Dosage: BID
     Route: 048
  6. ZOLOFT [Concomitant]
     Indication: DEPRESSION
     Route: 048

REACTIONS (5)
  - AGITATION [None]
  - DRUG DOSE OMISSION [None]
  - INSOMNIA [None]
  - MUSCLE TWITCHING [None]
  - WRONG TECHNIQUE IN DRUG USAGE PROCESS [None]
